FAERS Safety Report 24250714 (Version 1)
Quarter: 2024Q3

REPORT INFORMATION
  Report Type: Spontaneous
  Country: US (occurrence: US)
  Receive Date: 20240826
  Receipt Date: 20240826
  Transmission Date: 20241017
  Serious: Yes (Other)
  Sender: MEDEXUS PHARMA
  Company Number: US-MEDEXUS PHARMA, INC.-2023MED00473

PATIENT
  Sex: Female

DRUGS (2)
  1. RASUVO [Suspect]
     Active Substance: METHOTREXATE SODIUM
     Dosage: UNK
     Dates: start: 2022, end: 2022
  2. RASUVO [Suspect]
     Active Substance: METHOTREXATE SODIUM
     Dosage: UPPER THIGH
     Dates: start: 2022

REACTIONS (5)
  - Pneumonia [Recovered/Resolved]
  - Product dose omission issue [Not Recovered/Not Resolved]
  - Device defective [Not Recovered/Not Resolved]
  - Device mechanical issue [Not Recovered/Not Resolved]
  - Device delivery system issue [Not Recovered/Not Resolved]

NARRATIVE: CASE EVENT DATE: 20220101
